FAERS Safety Report 5856532-2 (Version None)
Quarter: 2008Q3

REPORT INFORMATION
  Report Type: 
  Country: None (occurrence: None)
  Receive Date: 20080825
  Receipt Date: 20080819
  Transmission Date: 20090109
  Serious: Yes (Death)
  Sender: FDA-Public Use
  Company Number: US-ASTRAZENECA-2008UW16549

PATIENT

DRUGS (3)
  1. ELAVIL [Suspect]
     Route: 048
  2. ARSENIC [Suspect]
  3. RAT POISON [Suspect]

REACTIONS (1)
  - POISONING [None]
